FAERS Safety Report 10801732 (Version 1)
Quarter: 2015Q1

REPORT INFORMATION
  Report Type: Spontaneous
  Country: US (occurrence: US)
  Receive Date: 20150217
  Receipt Date: 20150217
  Transmission Date: 20150721
  Serious: Yes (Hospitalization)
  Sender: FDA-Public Use
  Company Number: US-BAYER-2015-021894

PATIENT
  Age: 19 Year
  Sex: Female

DRUGS (4)
  1. YAZ [Suspect]
     Active Substance: DROSPIRENONE\ETHINYL ESTRADIOL
  2. ZITHROMAX [Concomitant]
     Active Substance: AZITHROMYCIN DIHYDRATE
     Dosage: 250 MG, UNK
     Route: 048
  3. PROMETHAZINE - CODEINE [CODEINE PHOSPHATE,PROMETHAZINE HYDROCHLORI [Concomitant]
     Dosage: 1 TO 2 TBS, TID AS PER NEEDED
  4. ADVIL [Concomitant]
     Active Substance: IBUPROFEN
     Dosage: AS NEEDED

REACTIONS (1)
  - Pulmonary embolism [None]

NARRATIVE: CASE EVENT DATE: 20041127
